FAERS Safety Report 4315189-2 (Version None)
Quarter: 2004Q1

REPORT INFORMATION
  Report Type: 
  Country: None (occurrence: None)
  Receive Date: 20040310
  Receipt Date: 20020516
  Transmission Date: 20041129
  Serious: Yes (Other)
  Sender: FDA-Public Use
  Company Number: WAES 0205USA02053

PATIENT
  Age: 37 Year
  Sex: Male

DRUGS (1)
  1. VIOXX [Suspect]
     Indication: NECK PAIN
     Route: 048
     Dates: start: 20010606, end: 20010608

REACTIONS (21)
  - ACUTE SINUSITIS [None]
  - BLOOD PRESSURE INCREASED [None]
  - BRONCHITIS [None]
  - CHEST DISCOMFORT [None]
  - CHEST PAIN [None]
  - DIZZINESS [None]
  - DYSPNOEA [None]
  - EPIDIDYMITIS [None]
  - FOOT FRACTURE [None]
  - FOREIGN BODY TRAUMA [None]
  - HEAD INJURY [None]
  - HEART RATE INCREASED [None]
  - INFERTILITY MALE [None]
  - INJURY [None]
  - MUSCLE SPASMS [None]
  - MYOCARDIAL INFARCTION [None]
  - ORCHITIS [None]
  - SINUSITIS [None]
  - TINEA CRURIS [None]
  - TREATMENT NONCOMPLIANCE [None]
  - VIRAL RASH [None]
